FAERS Safety Report 9595248 (Version 2)
Quarter: 2013Q4

REPORT INFORMATION
  Report Type: Spontaneous
  Country: US (occurrence: US)
  Receive Date: 20131004
  Receipt Date: 20131004
  Transmission Date: 20140711
  Serious: No
  Sender: FDA-Public Use
  Company Number: US-PURDUE-USA-2012-0091592

PATIENT
  Age: 51 Year
  Sex: Female

DRUGS (2)
  1. BUTRANS [Suspect]
     Indication: PAIN
     Dosage: 10 MCG/HR, UNK
     Route: 062
     Dates: start: 2011
  2. BUTRANS [Suspect]
     Dosage: 20 MCG/HR, UNK
     Route: 062

REACTIONS (12)
  - Drug withdrawal syndrome [Unknown]
  - Pain [Unknown]
  - Incorrect dose administered [Unknown]
  - Visual impairment [Unknown]
  - Nausea [Unknown]
  - Vomiting [Unknown]
  - Malaise [Unknown]
  - Unevaluable event [Unknown]
  - Abnormal loss of weight [Unknown]
  - Agitation [Unknown]
  - Nervousness [Unknown]
  - Irritability [Unknown]
